FAERS Safety Report 11088330 (Version 2)
Quarter: 2015Q2

REPORT INFORMATION
  Report Type: Spontaneous
  Country: US (occurrence: None)
  Receive Date: 20150430
  Receipt Date: 20150518
  Transmission Date: 20150821
  Serious: Yes (Disabling, Other)
  Sender: FDA-Public Use
  Company Number: US-H14001-15-00602

PATIENT
  Sex: Male

DRUGS (4)
  1. CEFOXITIN [Suspect]
     Active Substance: CEFOXITIN\CEFOXITIN SODIUM
     Indication: BACTERIAL INFECTION
     Dosage: UNKNOWN, 1 IN 8 HR, IV THROUGH PORTA-CATH IN CHEST
     Route: 042
  2. ANTIBIOTICS (ANTIBIOTICS) (UNKNOWN) [Suspect]
     Active Substance: UNSPECIFIED INGREDIENT
     Indication: BACTERIAL INFECTION
  3. VFEND [Suspect]
     Active Substance: VORICONAZOLE
     Indication: BACTERIAL INFECTION
     Dosage: 400 MG (200 MG, 1 IN 12 HR), ORAL
     Route: 048
  4. AMIKACIN (AMIKACIN) [Suspect]
     Active Substance: AMIKACIN
     Indication: PRODUCT USED FOR UNKNOWN INDICATION
     Dosage: UNKNOWN, 1 IN 1 D, INTRAVNEOUS
     Route: 042

REACTIONS (1)
  - Deafness bilateral [None]
